FAERS Safety Report 21131850 (Version 1)
Quarter: 2022Q3

REPORT INFORMATION
  Report Type: Spontaneous
  Country: CA (occurrence: CA)
  Receive Date: 20220726
  Receipt Date: 20220726
  Transmission Date: 20221027
  Serious: Yes (Life-Threatening, Hospitalization, Other)
  Sender: FDA-Public Use
  Company Number: None

PATIENT

DRUGS (6)
  1. DEXTROSE [Suspect]
     Active Substance: DEXTROSE
     Indication: Hypotension
     Dosage: 11.5 LITER
     Route: 041
  2. CEFTAZIDIME [Concomitant]
     Active Substance: CEFTAZIDIME
     Indication: Pseudomonas infection
     Dosage: POWDER FOR SOLUTION
  3. MEROPENEM                          /01250502/ [Concomitant]
     Indication: Pseudomonas infection
     Dosage: POWDER FOR SOLUTION INTRAVENOUS
  4. NOREPINEPHRINE [Concomitant]
     Active Substance: NOREPINEPHRINE
     Indication: Septic shock
     Route: 041
  5. PREDNISONE [Concomitant]
     Active Substance: PREDNISONE
     Indication: Chronic obstructive pulmonary disease
  6. TOBRAMYCIN                         /00304202/ [Concomitant]
     Indication: Pseudomonas infection
     Dosage: OPHTHALMIC

REACTIONS (3)
  - Generalised tonic-clonic seizure [Recovered/Resolved]
  - Hyponatraemia [Recovered/Resolved]
  - Off label use [Unknown]
